FAERS Safety Report 13783184 (Version 1)
Quarter: 2017Q3

REPORT INFORMATION
  Report Type: Spontaneous
  Country: US (occurrence: US)
  Receive Date: 20170724
  Receipt Date: 20170724
  Transmission Date: 20171127
  Serious: Yes (Hospitalization)
  Sender: FDA-Public Use
  Company Number: US-FRESENIUS MEDICAL CARE RENAL THERAPIES GROUP-FMC-1707-000738

PATIENT
  Age: 66 Year
  Sex: Female
  Weight: 76.8 kg

DRUGS (16)
  1. KLOR-CON [Concomitant]
     Active Substance: POTASSIUM CHLORIDE
  2. COUMADIN [Concomitant]
     Active Substance: WARFARIN SODIUM
  3. GLUCAGON. [Concomitant]
     Active Substance: GLUCAGON
  4. TRAMADOL. [Concomitant]
     Active Substance: TRAMADOL
  5. BENZONATATE. [Concomitant]
     Active Substance: BENZONATATE
  6. INSULIN [Concomitant]
     Active Substance: INSULIN NOS
  7. NARCAN [Concomitant]
     Active Substance: NALOXONE HYDROCHLORIDE
  8. HEPARIN [Concomitant]
     Active Substance: HEPARIN SODIUM
  9. MIRALAX [Concomitant]
     Active Substance: POLYETHYLENE GLYCOL 3350
  10. COLACE [Concomitant]
     Active Substance: DOCUSATE SODIUM
  11. CARDIZEM [Concomitant]
     Active Substance: DILTIAZEM HYDROCHLORIDE
  12. DIPHENHYDRAMINE. [Concomitant]
     Active Substance: DIPHENHYDRAMINE
  13. MORPHINE [Concomitant]
     Active Substance: MORPHINE
  14. ACETAMINOPHEN. [Concomitant]
     Active Substance: ACETAMINOPHEN
  15. ZOFRAN [Concomitant]
     Active Substance: ONDANSETRON HYDROCHLORIDE
  16. DELFLEX WITH DEXTROSE 2.5% LOW MAGNESIUM LOW CALCIUM [Suspect]
     Active Substance: CALCIUM CHLORIDE\DEXTROSE\MAGNESIUM CHLORIDE\SODIUM CHLORIDE\SODIUM LACTATE
     Indication: END STAGE RENAL DISEASE
     Dosage: 2000 ML QID
     Route: 033

REACTIONS (3)
  - Peritonitis bacterial [Recovered/Resolved]
  - Bloody peritoneal effluent [Recovered/Resolved]
  - Pleural effusion [Recovered/Resolved]

NARRATIVE: CASE EVENT DATE: 20170611
